FAERS Safety Report 4385939-8 (Version None)
Quarter: 2004Q2

REPORT INFORMATION
  Report Type: 
  Country: None (occurrence: None)
  Receive Date: 20040628
  Receipt Date: 20040616
  Transmission Date: 20050107
  Serious: Yes (Death)
  Sender: FDA-Public Use
  Company Number: US-BRISTOL-MYERS SQUIBB COMPANY-12617494

PATIENT
  Sex: Female

DRUGS (1)
  1. MYCOSTATIN OS [Suspect]
     Route: 042

REACTIONS (2)
  - CARDIAC ARREST [None]
  - MEDICATION ERROR [None]
